FAERS Safety Report 6598393-2 (Version None)
Quarter: 2010Q1

REPORT INFORMATION
  Report Type: 
  Country: None (occurrence: None)
  Receive Date: 20100224
  Receipt Date: 20050214
  Transmission Date: 20100710
  Serious: No
  Sender: FDA-Public Use
  Company Number: US-ALLERGAN-200501695

PATIENT
  Age: 45 Year
  Sex: Female

DRUGS (1)
  1. BOTOX COSMETIC [Suspect]
     Indication: SKIN WRINKLING
     Dosage: 18UNITS, PRN
     Route: 030
     Dates: end: 20041101

REACTIONS (3)
  - BLISTER [None]
  - PRURITUS [None]
  - SWELLING [None]
